FAERS Safety Report 13556314 (Version 1)
Quarter: 2017Q2

REPORT INFORMATION
  Report Type: Spontaneous
  Country: US (occurrence: US)
  Receive Date: 20170517
  Receipt Date: 20170517
  Transmission Date: 20170830
  Serious: No
  Sender: FDA-Public Use
  Company Number: US-SA-2017SA011726

PATIENT
  Sex: Male

DRUGS (6)
  1. SOLOSTAR [Concomitant]
     Active Substance: DEVICE
     Indication: TYPE 2 DIABETES MELLITUS
  2. TOUJEO [Suspect]
     Active Substance: INSULIN GLARGINE
     Indication: TYPE 2 DIABETES MELLITUS
     Dosage: DOSE:70 UNIT(S)
     Route: 065
  3. TRULICITY [Concomitant]
     Active Substance: DULAGLUTIDE
  4. VICTOZA [Concomitant]
     Active Substance: LIRAGLUTIDE
     Dates: start: 201610
  5. TOUJEO [Suspect]
     Active Substance: INSULIN GLARGINE
     Indication: TYPE 2 DIABETES MELLITUS
     Route: 065
     Dates: start: 201610
  6. SOLOSTAR [Concomitant]
     Active Substance: DEVICE
     Indication: TYPE 2 DIABETES MELLITUS
     Dates: start: 201610

REACTIONS (5)
  - Asthenia [Unknown]
  - Glycosylated haemoglobin increased [Recovering/Resolving]
  - Off label use [Unknown]
  - Blood glucose increased [Unknown]
  - Blood glucose increased [Unknown]

NARRATIVE: CASE EVENT DATE: 20170119
